FAERS Safety Report 10375159 (Version 1)
Quarter: 2014Q3

REPORT INFORMATION
  Report Type: Spontaneous
  Country: US (occurrence: None)
  Receive Date: 20140808
  Receipt Date: 20140808
  Transmission Date: 20150326
  Serious: No
  Sender: FDA-Public Use
  Company Number: None

PATIENT
  Age: 3 Year
  Sex: Female
  Weight: 14.52 kg

DRUGS (1)
  1. EPIPEN [Suspect]
     Active Substance: EPINEPHRINE

REACTIONS (5)
  - Injury associated with device [None]
  - Haemorrhage [None]
  - Palpitations [None]
  - Circumstance or information capable of leading to device use error [None]
  - Accidental exposure to product [None]

NARRATIVE: CASE EVENT DATE: 20131030
